FAERS Safety Report 5366253-0 (Version None)
Quarter: 2007Q2

REPORT INFORMATION
  Report Type: 
  Country: None (occurrence: None)
  Receive Date: 20070619
  Receipt Date: 20070619
  Transmission Date: 20071010
  Serious: Yes (Hospitalization)
  Sender: FDA-Public Use
  Company Number: None

PATIENT
  Age: 78 Year
  Sex: Male
  Weight: 97.3 kg

DRUGS (2)
  1. PIPERACILLIN/TAZOBACTAM INJ [Suspect]
     Indication: INCISIONAL DRAINAGE
     Dosage: 2.25GM/50ML Q6H IVPB
     Route: 042
     Dates: start: 20070327, end: 20070328
  2. PIPERACILLIN/TAZOBACTAM INJ [Suspect]
     Indication: SUBCUTANEOUS ABSCESS
     Dosage: 2.25GM/50ML Q6H IVPB
     Route: 042
     Dates: start: 20070327, end: 20070328

REACTIONS (3)
  - CELLULITIS [None]
  - CLOSTRIDIUM DIFFICILE COLITIS [None]
  - SUBCUTANEOUS ABSCESS [None]
